FAERS Safety Report 5144270-3 (Version None)
Quarter: 2006Q4

REPORT INFORMATION
  Report Type: 
  Country: None (occurrence: None)
  Receive Date: 20061102
  Receipt Date: 20061102
  Transmission Date: 20070319
  Serious: Yes (Hospitalization)
  Sender: FDA-Public Use
  Company Number: None

PATIENT
  Age: 18 Year
  Sex: Female

DRUGS (2)
  1. ZOFRAN [Suspect]
     Indication: NAUSEA
     Dosage: 4 MG  ONCE  IV
     Route: 042
     Dates: start: 20061013, end: 20061014
  2. ZOFRAN [Suspect]
     Indication: VOMITING
     Dosage: 4 MG  ONCE  IV
     Route: 042
     Dates: start: 20061013, end: 20061014

REACTIONS (2)
  - DYSARTHRIA [None]
  - DYSTONIA [None]
